FAERS Safety Report 9713831 (Version 1)
Quarter: 2013Q4

REPORT INFORMATION
  Report Type: Spontaneous
  Country: US (occurrence: None)
  Receive Date: 20131126
  Receipt Date: 20131126
  Transmission Date: 20140711
  Serious: No
  Sender: FDA-Public Use
  Company Number: None

PATIENT
  Age: 37 Year
  Sex: Female
  Weight: 56.7 kg

DRUGS (2)
  1. BUSPIRONE [Suspect]
     Indication: ANXIETY
     Dosage: 3 TABLETS
     Route: 048
     Dates: start: 20130115, end: 20130515
  2. BUSPIRONE [Suspect]
     Indication: INSOMNIA
     Dosage: 3 TABLETS
     Route: 048
     Dates: start: 20130115, end: 20130515

REACTIONS (6)
  - Headache [None]
  - Dizziness [None]
  - Anxiety [None]
  - Depression [None]
  - Nightmare [None]
  - Product substitution issue [None]
